FAERS Safety Report 7057380-0 (Version None)
Quarter: 2010Q4

REPORT INFORMATION
  Report Type: 
  Country: None (occurrence: None)
  Receive Date: 20101022
  Receipt Date: 20101013
  Transmission Date: 20110411
  Serious: Yes (Hospitalization)
  Sender: FDA-Public Use
  Company Number: FR-ASTRAZENECA-2010SE48742

PATIENT
  Age: 30 Year
  Sex: Male

DRUGS (7)
  1. TENORMIN [Suspect]
     Route: 048
     Dates: start: 20100428, end: 20100922
  2. MOPRAL [Suspect]
     Route: 048
     Dates: start: 20100419, end: 20100928
  3. AMLODIPINE [Suspect]
     Route: 048
     Dates: start: 20100419, end: 20100928
  4. APROVEL [Suspect]
     Route: 048
     Dates: start: 20100720, end: 20100928
  5. MYFORTIC [Concomitant]
  6. SOLUPRED [Concomitant]
  7. CERTICAN [Concomitant]

REACTIONS (1)
  - HEPATITIS [None]
